FAERS Safety Report 9870156 (Version 1)
Quarter: 2014Q1

REPORT INFORMATION
  Report Type: Spontaneous
  Country: IE (occurrence: IE)
  Receive Date: 20140205
  Receipt Date: 20140205
  Transmission Date: 20141002
  Serious: Yes (Other)
  Sender: FDA-Public Use
  Company Number: IE-PFIZER INC-2014029163

PATIENT
  Age: 29 Year
  Sex: Female

DRUGS (3)
  1. SYNAREL [Suspect]
     Dosage: 2 DF (2 PUFFS), 2X/DAY COMMENCED ON DAY 21 OF CYCLE
     Route: 045
     Dates: start: 20131107
  2. PUREGON [Suspect]
     Dosage: 300 IU, UNK
     Dates: start: 20131128
  3. LUVERIS [Suspect]
     Dosage: 75 IU, UNK
     Dates: start: 20131128

REACTIONS (3)
  - Ovarian hyperstimulation syndrome [Recovered/Resolved]
  - Abdominal pain [Recovered/Resolved]
  - Nausea [Recovered/Resolved]
